FAERS Safety Report 17680945 (Version 4)
Quarter: 2020Q2

REPORT INFORMATION
  Report Type: Report from Study
  Country: US (occurrence: US)
  Receive Date: 20200417
  Receipt Date: 20200619
  Transmission Date: 20200714
  Serious: Yes (Other)
  Sender: FDA-Public Use
  Company Number: US-AGIOS-2004US01832

PATIENT

DRUGS (2)
  1. AZACITIDINE. [Concomitant]
     Active Substance: AZACITIDINE
     Indication: ACUTE MYELOID LEUKAEMIA
     Dosage: 136 MILLIGRAM
     Route: 030
     Dates: start: 20190323
  2. TIBSOVO [Suspect]
     Active Substance: IVOSIDENIB
     Indication: ACUTE MYELOID LEUKAEMIA
     Dosage: 250MG, 2 TABLETS (500MG) DAILY
     Route: 048
     Dates: start: 20190624

REACTIONS (5)
  - Anaemia [Unknown]
  - Blood count abnormal [Unknown]
  - Neutropenia [Unknown]
  - Diarrhoea [Unknown]
  - Blast cell count increased [Unknown]
